FAERS Safety Report 6242069-8 (Version None)
Quarter: 2009Q2

REPORT INFORMATION
  Report Type: 
  Country: None (occurrence: None)
  Receive Date: 20090622
  Receipt Date: 20090608
  Transmission Date: 20091009
  Serious: Yes (Hospitalization)
  Sender: FDA-Public Use
  Company Number: 2009AL003943

PATIENT
  Sex: Male

DRUGS (3)
  1. SERTRALINE HYDROCHLORIDE [Suspect]
     Indication: DRUG USE FOR UNKNOWN INDICATION
     Dosage: 10 DF; PO
     Route: 048
  2. RISPERDAL [Concomitant]
  3. RISPERDAL CONSTA [Concomitant]

REACTIONS (2)
  - MALAISE [None]
  - MULTIPLE DRUG OVERDOSE [None]
